FAERS Safety Report 20922570 (Version 1)
Quarter: 2022Q2

REPORT INFORMATION
  Report Type: Spontaneous
  Country: US (occurrence: None)
  Receive Date: 20220607
  Receipt Date: 20220607
  Transmission Date: 20220721
  Serious: Yes (Other)
  Sender: FDA-Public Use
  Company Number: US-ROCHE-1977760

PATIENT
  Sex: Female

DRUGS (11)
  1. KLONOPIN [Suspect]
     Active Substance: CLONAZEPAM
     Indication: Multiple sclerosis
     Route: 048
  2. BACLOFEN [Concomitant]
     Active Substance: BACLOFEN
     Route: 054
     Dates: start: 20170726
  3. BUPROPION HYDROCHLORIDE [Concomitant]
     Active Substance: BUPROPION HYDROCHLORIDE
     Route: 048
  4. DILANTIN [Concomitant]
     Active Substance: PHENYTOIN
     Dosage: 100 MG (2 CAPSULES AT BEDTIME)
     Route: 048
     Dates: start: 20170328
  5. LEVOTHYROXINE SODIUM [Concomitant]
     Active Substance: LEVOTHYROXINE SODIUM
     Route: 048
  6. PRISTIQ EXTENDED-RELEASE [Concomitant]
     Active Substance: DESVENLAFAXINE SUCCINATE
     Route: 048
  7. PRISTIQ EXTENDED-RELEASE [Concomitant]
     Active Substance: DESVENLAFAXINE SUCCINATE
     Route: 048
  8. TOPAMAX [Concomitant]
     Active Substance: TOPIRAMATE
     Dosage: 100 MG (AT BEDTIME)
     Route: 048
     Dates: start: 20170328
  9. TYSABRI [Concomitant]
     Active Substance: NATALIZUMAB
     Indication: Multiple sclerosis
     Dosage: UNK
     Route: 065
     Dates: end: 20170803
  10. DEXTROAMPHETAMINE [Concomitant]
     Active Substance: DEXTROAMPHETAMINE
     Route: 048
  11. AMPHETAMINE [Concomitant]
     Active Substance: AMPHETAMINE
     Route: 048

REACTIONS (22)
  - Deafness [Unknown]
  - Haematochezia [Unknown]
  - Hypothyroidism [Unknown]
  - Asthenia [Unknown]
  - Pain [Unknown]
  - Rash [Unknown]
  - Headache [Unknown]
  - Dysphonia [Unknown]
  - Eye disorder [Unknown]
  - Neck pain [Unknown]
  - Dysphagia [Unknown]
  - Dyspepsia [Unknown]
  - Urinary incontinence [Unknown]
  - Back pain [Unknown]
  - Coordination abnormal [Unknown]
  - Amnesia [Unknown]
  - Hypoaesthesia [Unknown]
  - Paraesthesia [Unknown]
  - Increased tendency to bruise [Unknown]
  - Constipation [Unknown]
  - Dyspepsia [Unknown]
  - Off label use [Unknown]
